FAERS Safety Report 12939082 (Version 7)
Quarter: 2017Q4

REPORT INFORMATION
  Report Type: Report from Study
  Country: JP (occurrence: JP)
  Receive Date: 20161115
  Receipt Date: 20171002
  Transmission Date: 20180320
  Serious: Yes (Hospitalization, Other)
  Sender: FDA-Public Use
  Company Number: JP-ASTELLAS-2016JP019125AA

PATIENT
  Age: 79 Year
  Sex: Male
  Weight: 45 kg

DRUGS (11)
  1. URSO [Concomitant]
     Active Substance: URSODIOL
     Indication: PRODUCT USED FOR UNKNOWN INDICATION
     Route: 048
  2. CELECOX [Concomitant]
     Active Substance: CELECOXIB
     Indication: COMPRESSION FRACTURE
     Route: 048
  3. METHYCOBAL [Concomitant]
     Active Substance: METHYLCOBALAMIN
     Indication: UVEITIS
     Route: 048
  4. LOXONIN [Concomitant]
     Active Substance: LOXOPROFEN SODIUM
     Indication: COMPRESSION FRACTURE
     Dosage: UNK UNK, ONCE DAILY
     Route: 061
  5. DECADRON [Concomitant]
     Active Substance: DEXAMETHASONE
     Indication: HORMONE-REFRACTORY PROSTATE CANCER
     Dosage: 0.5 MG, TWICE DAILY
     Route: 048
     Dates: start: 20140312
  6. LEUPLIN [Concomitant]
     Active Substance: LEUPROLIDE ACETATE
     Indication: HORMONE-REFRACTORY PROSTATE CANCER
     Dosage: 11.25 MG, EVERY 3 MONTHS
     Route: 058
  7. PRORANON [Concomitant]
     Indication: UVEITIS
     Dosage: UNK UNK, THRICE DAILY
     Route: 047
  8. ENZALUTAMIDE [Suspect]
     Active Substance: ENZALUTAMIDE
     Indication: HORMONE-REFRACTORY PROSTATE CANCER
     Route: 048
     Dates: start: 20140924, end: 20141105
  9. FLUMETHOLON [Concomitant]
     Active Substance: FLUOROMETHOLONE
     Indication: UVEITIS
     Dosage: UNK UNK, 4 TIMES DAILY
     Route: 047
  10. CARNACULIN                         /00088101/ [Concomitant]
     Active Substance: KALLIDINOGENASE
     Indication: UVEITIS
     Route: 048
  11. HYPADIL [Concomitant]
     Active Substance: NIPRADILOL
     Indication: UVEITIS
     Dosage: UNK UNK, TWICE DAILY
     Route: 047

REACTIONS (1)
  - Interstitial lung disease [Recovered/Resolved]

NARRATIVE: CASE EVENT DATE: 20141022
